FAERS Safety Report 7538645-2 (Version None)
Quarter: 2011Q2

REPORT INFORMATION
  Report Type: 
  Country: None (occurrence: None)
  Receive Date: 20110610
  Receipt Date: 20110531
  Transmission Date: 20111010
  Serious: No
  Sender: FDA-Public Use
  Company Number: US-BIOGENIDEC-2011BI020201

PATIENT
  Sex: Female

DRUGS (2)
  1. AVONEX [Suspect]
     Indication: MULTIPLE SCLEROSIS
     Route: 030
  2. TYLENOL PM [Concomitant]
     Indication: PREMEDICATION

REACTIONS (5)
  - PARANOIA [None]
  - NASOPHARYNGITIS [None]
  - THINKING ABNORMAL [None]
  - PSYCHOTIC DISORDER [None]
  - DEPRESSION [None]
